FAERS Safety Report 10369369 (Version 1)
Quarter: 2014Q3

REPORT INFORMATION
  Report Type: Spontaneous
  Country: US (occurrence: US)
  Receive Date: 20140807
  Receipt Date: 20140807
  Transmission Date: 20150326
  Serious: Yes (Other)
  Sender: FDA-Public Use
  Company Number: US-ABBVIE-14P-163-1255789-00

PATIENT
  Age: 13 Year
  Sex: Male
  Weight: 62.65 kg

DRUGS (7)
  1. DEPAKOTE ER [Suspect]
     Active Substance: DIVALPROEX SODIUM
     Indication: CONVULSION
     Dosage: ONCE IN THE MORNING AND ONCE EVENING
     Dates: start: 20140527, end: 20140603
  2. DEPAKOTE ER [Suspect]
     Active Substance: DIVALPROEX SODIUM
     Dosage: DOSE DECREASED
     Dates: start: 20140624
  3. DEPAKOTE ER [Suspect]
     Active Substance: DIVALPROEX SODIUM
     Indication: CONVULSION
     Dosage: ONCE IN THE EVENING
     Dates: start: 20140603, end: 20140610
  4. DEPAKOTE ER [Suspect]
     Active Substance: DIVALPROEX SODIUM
     Dosage: ONCE IN THE EVENING
     Dates: start: 20140617, end: 20140624
  5. DEPAKOTE ER [Suspect]
     Active Substance: DIVALPROEX SODIUM
     Dosage: ONCE IN THE MORNING
     Dates: start: 20140603, end: 20140610
  6. DEPAKOTE ER [Suspect]
     Active Substance: DIVALPROEX SODIUM
     Dosage: DOSE DECREASED
     Dates: start: 20140624
  7. DEPAKOTE ER [Suspect]
     Active Substance: DIVALPROEX SODIUM
     Dosage: ONCE IN THE MORNING AND ONCE IN THE EVEN
     Dates: start: 20140610, end: 20140624

REACTIONS (6)
  - Violence-related symptom [Recovered/Resolved]
  - Convulsion [Recovering/Resolving]
  - Anger [Recovered/Resolved]
  - Fear [Recovered/Resolved]
  - Self-injurious ideation [Recovered/Resolved]
  - Hallucination [Not Recovered/Not Resolved]

NARRATIVE: CASE EVENT DATE: 201405
